FAERS Safety Report 8520690-1 (Version None)
Quarter: 2012Q3

REPORT INFORMATION
  Report Type: 
  Country: None (occurrence: None)
  Receive Date: 20120705
  Receipt Date: 20120627
  Transmission Date: 20120928
  Serious: Yes (Hospitalization)
  Sender: FDA-Public Use
  Company Number: 2012SP036727

PATIENT
  Age: 57 Year
  Sex: Male

DRUGS (1)
  1. CLARITIN [Suspect]
     Indication: SEASONAL ALLERGY
     Dosage: 10 MG PO
     Route: 048

REACTIONS (9)
  - CARDIAC FAILURE [None]
  - PULMONARY CONGESTION [None]
  - SYNCOPE [None]
  - TACHYCARDIA [None]
  - CARDIOMEGALY [None]
  - ATRIAL FIBRILLATION [None]
  - TORSADE DE POINTES [None]
  - VENTRICULAR EXTRASYSTOLES [None]
  - ELECTROCARDIOGRAM QT PROLONGED [None]
